FAERS Safety Report 16233428 (Version 1)
Quarter: 2019Q2

REPORT INFORMATION
  Report Type: Report from Study
  Country: US (occurrence: US)
  Receive Date: 20190424
  Receipt Date: 20190424
  Transmission Date: 20190711
  Serious: Yes (Hospitalization, Other)
  Sender: FDA-Public Use
  Company Number: US-SA-2019SA108897

PATIENT
  Age: 47 Year
  Sex: Female

DRUGS (1)
  1. ENOXAPARIN SODIUM. [Suspect]
     Active Substance: ENOXAPARIN SODIUM
     Indication: DEEP VEIN THROMBOSIS
     Dosage: 70 U, BID
     Route: 058

REACTIONS (5)
  - Adnexa uteri mass [Not Recovered/Not Resolved]
  - Mastectomy [Unknown]
  - Invasive breast carcinoma [Not Recovered/Not Resolved]
  - Metastasis [Not Recovered/Not Resolved]
  - Deep vein thrombosis [Not Recovered/Not Resolved]
